FAERS Safety Report 9680895 (Version 2)
Quarter: 2013Q4

REPORT INFORMATION
  Report Type: Spontaneous
  Country: ES (occurrence: ES)
  Receive Date: 20131111
  Receipt Date: 20131203
  Transmission Date: 20140711
  Serious: Yes (Death, Other)
  Sender: FDA-Public Use
  Company Number: ES-ASTELLAS-2013EU009653

PATIENT
  Age: 39 Year
  Sex: Male

DRUGS (2)
  1. TACROLIMUS SYSTEMIC [Suspect]
     Indication: GRAFT VERSUS HOST DISEASE
     Dosage: UNK
     Route: 065
  2. CORTICOSTEROID NOS [Suspect]
     Indication: GRAFT VERSUS HOST DISEASE
     Dosage: UNK
     Route: 065

REACTIONS (3)
  - Off label use [Unknown]
  - Progressive multifocal leukoencephalopathy [Fatal]
  - JC virus infection [Unknown]
